FAERS Safety Report 22030087 (Version 1)
Quarter: 2023Q1

REPORT INFORMATION
  Report Type: Spontaneous
  Country: US (occurrence: None)
  Receive Date: 20230221
  Receipt Date: 20230221
  Transmission Date: 20230418
  Serious: No
  Sender: FDA-Public Use
  Company Number: None

PATIENT
  Age: 93 Year
  Sex: Male

DRUGS (1)
  1. ENOXAPARIN [Suspect]
     Active Substance: ENOXAPARIN
     Dosage: FREQUENCY : DAILY;?
     Route: 058
     Dates: start: 202112

REACTIONS (1)
  - Bladder cancer [None]

NARRATIVE: CASE EVENT DATE: 20230221
